FAERS Safety Report 18461786 (Version 1)
Quarter: 2020Q4

REPORT INFORMATION
  Report Type: Spontaneous
  Country: US (occurrence: US)
  Receive Date: 20201103
  Receipt Date: 20201103
  Transmission Date: 20210114
  Serious: No
  Sender: FDA-Public Use
  Company Number: None

PATIENT
  Age: 78 Year
  Sex: Female
  Weight: 69.48 kg

DRUGS (9)
  1. TYLENOL EXTRA STRENGTH [Concomitant]
     Active Substance: ACETAMINOPHEN
  2. RETACRIT [Concomitant]
     Active Substance: EPOETIN ALFA-EPBX
  3. MAGNESIUM SULFATE. [Concomitant]
     Active Substance: MAGNESIUM SULFATE
  4. FOSAPREPITANT DIMEGLUMINE. [Concomitant]
     Active Substance: FOSAPREPITANT DIMEGLUMINE
  5. METOPROLOL TARTRATE. [Concomitant]
     Active Substance: METOPROLOL TARTRATE
  6. REBLOZYL [Suspect]
     Active Substance: LUSPATERCEPT-AAMT
     Indication: MYELODYSPLASTIC SYNDROME
     Dosage: ?          OTHER FREQUENCY:EVERY 21 DAYS;?
     Route: 058
     Dates: start: 20200327, end: 20201103
  7. FOLIC ACID. [Concomitant]
     Active Substance: FOLIC ACID
  8. GLYBURIDE. [Concomitant]
     Active Substance: GLYBURIDE
  9. ELIQUIS [Concomitant]
     Active Substance: APIXABAN

REACTIONS (1)
  - Neutropenia [None]

NARRATIVE: CASE EVENT DATE: 20201103
